FAERS Safety Report 10018410 (Version 1)
Quarter: 2014Q1

REPORT INFORMATION
  Report Type: Spontaneous
  Country: GB (occurrence: GB)
  Receive Date: 20140318
  Receipt Date: 20140318
  Transmission Date: 20141002
  Serious: Yes (Other)
  Sender: FDA-Public Use
  Company Number: GB-TEVA-467879ISR

PATIENT
  Sex: Female

DRUGS (3)
  1. OXALIPLATIN [Suspect]
     Route: 065
  2. AVASTIN [Suspect]
     Route: 065
  3. CAPECITABINE [Suspect]

REACTIONS (2)
  - Cardiac disorder [Unknown]
  - Dyspnoea [Unknown]
